FAERS Safety Report 25405794 (Version 1)
Quarter: 2025Q2

REPORT INFORMATION
  Report Type: Spontaneous
  Country: GB (occurrence: GB)
  Receive Date: 20250606
  Receipt Date: 20250606
  Transmission Date: 20250717
  Serious: Yes (Other)
  Sender: JOHNSON AND JOHNSON
  Company Number: GB-JNJFOC-20250539391

PATIENT
  Sex: Female

DRUGS (1)
  1. TOPAMAX [Suspect]
     Active Substance: TOPIRAMATE
     Indication: Epilepsy
     Route: 065

REACTIONS (10)
  - Spinal operation [Unknown]
  - Hip surgery [Unknown]
  - Encephalitis [Unknown]
  - Raynaud^s phenomenon [Unknown]
  - Systemic lupus erythematosus [Unknown]
  - Scoliosis [Unknown]
  - Stent placement [Unknown]
  - Procedural complication [Unknown]
  - Thrombosis [Unknown]
  - Gastrointestinal disorder [Unknown]
